FAERS Safety Report 8525709-X (Version None)
Quarter: 2012Q3

REPORT INFORMATION
  Report Type: 
  Country: None (occurrence: None)
  Receive Date: 20120720
  Receipt Date: 20120711
  Transmission Date: 20120928
  Serious: Yes (Death, Hospitalization, Other)
  Sender: FDA-Public Use
  Company Number: US-009507513-1204USA02998

PATIENT

DRUGS (5)
  1. GLUCOTROL [Suspect]
     Indication: HERPES ZOSTER
     Dosage: 10 MG, BID
     Route: 048
  2. JANUVIA [Suspect]
     Indication: DIABETES MELLITUS
     Dosage: 50 MG, QD
     Route: 048
     Dates: start: 20110101
  3. FENTANYL [Suspect]
     Indication: NEUROPATHY PERIPHERAL
     Dosage: PATCH /EVERY 72 HOURS
     Dates: start: 20110101
  4. NORVASC [Suspect]
     Indication: HYPERTENSION
     Dosage: 10 MG, BID
     Route: 048
  5. NEURONTIN [Suspect]
     Dosage: 600 MG, BID
     Dates: start: 20110101

REACTIONS (5)
  - MALAISE [None]
  - MYOCARDIAL INFARCTION [None]
  - RENAL FAILURE ACUTE [None]
  - URINARY TRACT INFECTION [None]
  - SEPSIS [None]
